FAERS Safety Report 15298386 (Version 4)
Quarter: 2018Q3

REPORT INFORMATION
  Report Type: Spontaneous
  Country: BR (occurrence: BR)
  Receive Date: 20180820
  Receipt Date: 20180913
  Transmission Date: 20181010
  Serious: Yes (Life-Threatening, Other)
  Sender: FDA-Public Use
  Company Number: PHHY2018BR072016

PATIENT
  Sex: Female
  Weight: 82 kg

DRUGS (3)
  1. ATENOLOL. [Suspect]
     Active Substance: ATENOLOL
     Indication: PRODUCT USED FOR UNKNOWN INDICATION
     Route: 065
  2. VISKALDIX [Suspect]
     Active Substance: CLOPAMIDE\PINDOLOL
     Indication: HYPERTENSION
     Dosage: 0.5 DF, QD
     Route: 048
  3. HYDROCHLOROTHIAZIDE. [Suspect]
     Active Substance: HYDROCHLOROTHIAZIDE
     Indication: PRODUCT USED FOR UNKNOWN INDICATION
     Route: 065

REACTIONS (8)
  - Cough [Recovered/Resolved]
  - Intentional product misuse [Unknown]
  - Glaucoma [Recovered/Resolved]
  - Hypertension [Recovered/Resolved]
  - Dyspnoea [Recovered/Resolved]
  - Wrong technique in product usage process [Unknown]
  - Glaucoma [Not Recovered/Not Resolved]
  - Feeling abnormal [Recovered/Resolved]
